FAERS Safety Report 4300649-0 (Version None)
Quarter: 2004Q1

REPORT INFORMATION
  Report Type: 
  Country: None (occurrence: None)
  Receive Date: 20040217
  Receipt Date: 20040204
  Transmission Date: 20041129
  Serious: Yes (Death)
  Sender: FDA-Public Use
  Company Number: JP-JNJFOC-20040201533

PATIENT
  Age: 47 Year
  Sex: Male
  Weight: 73.5 kg

DRUGS (12)
  1. RISPERDAL [Suspect]
     Indication: SCHIZOPHRENIA
     Dosage: 2 + 3 + 6 MG, IN 1 DAY, ORAL
     Route: 048
     Dates: end: 20030101
  2. RISPERDAL [Suspect]
     Indication: SCHIZOPHRENIA
     Dosage: 2 + 3 + 6 MG, IN 1 DAY, ORAL
     Route: 048
     Dates: start: 20030101, end: 20030301
  3. RISPERDAL [Suspect]
     Indication: SCHIZOPHRENIA
     Dosage: 2 + 3 + 6 MG, IN 1 DAY, ORAL
     Route: 048
     Dates: start: 20010101
  4. RISPERDAL [Suspect]
     Indication: SCHIZOPHRENIA
     Dosage: 2 + 3 + 6 MG, IN 1 DAY, ORAL
     Route: 048
     Dates: start: 20030401
  5. OLANZAPINE [Suspect]
     Indication: DRUG USE FOR UNKNOWN INDICATION
     Dosage: 2.5 MG, IN 1 DAY, ORAL
     Route: 048
     Dates: start: 20040131
  6. PSYCHOTROPIC AGENTS (ANTIPSYCHOTICS) [Suspect]
     Indication: DRUG USE FOR UNKNOWN INDICATION
     Dosage: 1IN 1 AS NECCESSARY, ORAL
     Route: 048
  7. TRIHEXYPHENIDYL HCL [Concomitant]
  8. BIPERIDEN HYDROCHLORIDE TAB [Concomitant]
  9. BROMAZEPAM (BROMAZEPAM) [Concomitant]
  10. QUAZEPAM [Concomitant]
  11. TRIAZOLAM [Concomitant]
  12. VEGETAMIN (VEGETAMIN) [Concomitant]

REACTIONS (8)
  - ANXIETY [None]
  - CARDIAC FAILURE ACUTE [None]
  - COMA [None]
  - DRUG INTERACTION [None]
  - FALL [None]
  - HYPERSOMNIA [None]
  - RESTLESSNESS [None]
  - SUDDEN DEATH [None]
